FAERS Safety Report 5039849-3 (Version None)
Quarter: 2006Q2

REPORT INFORMATION
  Report Type: 
  Country: None (occurrence: None)
  Receive Date: 20060630
  Receipt Date: 20060621
  Transmission Date: 20061013
  Serious: Yes (Other)
  Sender: FDA-Public Use
  Company Number: US-JNJFOC-20060600122

PATIENT
  Sex: Female
  Weight: 82.78 kg

DRUGS (9)
  1. REMICADE [Suspect]
     Route: 042
  2. REMICADE [Suspect]
     Route: 042
  3. REMICADE [Suspect]
     Indication: RHEUMATOID ARTHRITIS
     Route: 042
  4. CALTRATE [Concomitant]
  5. METHOTREXATE [Concomitant]
     Route: 048
  6. FOLIC ACID [Concomitant]
  7. PLAQUENIL [Concomitant]
  8. NEXIUM [Concomitant]
  9. ALBUTEROL [Concomitant]
     Dosage: AS NEEDED
     Route: 055

REACTIONS (1)
  - PNEUMONITIS CRYPTOCOCCAL [None]
